FAERS Safety Report 6714514-2 (Version None)
Quarter: 2010Q2

REPORT INFORMATION
  Report Type: 
  Country: None (occurrence: None)
  Receive Date: 20100506
  Receipt Date: 20100428
  Transmission Date: 20101027
  Serious: Yes (Hospitalization)
  Sender: FDA-Public Use
  Company Number: US-GILEAD-2010-0028860

PATIENT
  Sex: Female
  Weight: 69.462 kg

DRUGS (14)
  1. LETAIRIS [Suspect]
     Indication: PULMONARY ARTERIAL HYPERTENSION
     Route: 048
     Dates: start: 20090807
  2. AGGRENOX [Concomitant]
  3. LASIX [Concomitant]
  4. CARDIZEM CD [Concomitant]
  5. DIGOXIN [Concomitant]
  6. ISOSORBIDE DN [Concomitant]
  7. OMEPRAZOLE DR [Concomitant]
  8. DOCUSATE SODIUM [Concomitant]
  9. PREDNISONE [Concomitant]
  10. TRAZODONE HCL [Concomitant]
  11. PLAQUENIL [Concomitant]
  12. CRESTOR [Concomitant]
  13. VITAMIN C [Concomitant]
  14. MULTICOLLOIDAL MINERALS [Concomitant]

REACTIONS (3)
  - ANAEMIA [None]
  - DYSPHAGIA [None]
  - FATIGUE [None]
